FAERS Safety Report 9208303 (Version 1)
Quarter: 2013Q2

REPORT INFORMATION
  Report Type: Spontaneous
  Country: AU (occurrence: AU)
  Receive Date: 20130403
  Receipt Date: 20130403
  Transmission Date: 20140414
  Serious: Yes (Disabling)
  Sender: FDA-Public Use
  Company Number: AU-ABBOTT-13P-008-1070002-00

PATIENT
  Sex: 0

DRUGS (2)
  1. HUMIRA [Suspect]
     Indication: PSORIASIS
  2. METHOTREXATE [Concomitant]
     Indication: PRODUCT USED FOR UNKNOWN INDICATION

REACTIONS (5)
  - Deafness unilateral [Unknown]
  - Psoriasis [Unknown]
  - Otitis media [Unknown]
  - Depression [Unknown]
  - Drug level decreased [Unknown]
